FAERS Safety Report 9148221 (Version 1)
Quarter: 2013Q1

REPORT INFORMATION
  Report Type: Report from Study
  Country: US (occurrence: US)
  Receive Date: 20130308
  Receipt Date: 20130308
  Transmission Date: 20140127
  Serious: No
  Sender: FDA-Public Use
  Company Number: US-009507513-1303USA003458

PATIENT
  Sex: Female

DRUGS (10)
  1. RIBAVIRIN [Suspect]
     Indication: CHRONIC HEPATITIS C
     Dosage: DOSE 1000 MG QD
     Dates: start: 20110325
  2. RIBAVIRIN [Suspect]
     Dosage: 800 MG, QD
     Dates: start: 201104
  3. RIBAVIRIN [Suspect]
     Dosage: 400 MG, QD
     Dates: start: 20110923
  4. BOCEPREVIR [Suspect]
     Dosage: UNK, TID
     Dates: start: 20110923
  5. PEGINTERFERON ALFA-2A [Suspect]
     Indication: CHRONIC HEPATITIS C
     Dosage: 180 MICROGRAM, QW
     Dates: start: 20110325
  6. PEGINTERFERON ALFA-2A [Suspect]
     Dosage: 135 MICROGRAM, QW
     Dates: start: 20111028
  7. PEGINTERFERON ALFA-2A [Suspect]
     Dosage: 90 MICROGRAM, QW
     Dates: start: 201111
  8. PEGINTERFERON ALFA-2A [Suspect]
     Dosage: 135 MICROGRAM, QW
     Dates: start: 20111230
  9. PEGINTERFERON ALFA-2A [Suspect]
     Dosage: 90 MICROGRAM, QW
     Dates: start: 20120203, end: 20120224
  10. EPOETIN ALFA [Concomitant]

REACTIONS (15)
  - Red blood cell count decreased [Unknown]
  - Increased tendency to bruise [Unknown]
  - Haemoglobin decreased [Unknown]
  - Chest discomfort [Unknown]
  - Decreased appetite [Unknown]
  - Dry skin [Unknown]
  - Chills [Unknown]
  - Paraesthesia [Unknown]
  - White blood cell count decreased [Unknown]
  - Haemoglobin decreased [Unknown]
  - Local swelling [Unknown]
  - Haematocrit decreased [Unknown]
  - Pruritus [Unknown]
  - Platelet disorder [Unknown]
  - Rash macular [Unknown]
